FAERS Safety Report 16324005 (Version 1)
Quarter: 2019Q2

REPORT INFORMATION
  Report Type: Spontaneous
  Country: US (occurrence: US)
  Receive Date: 20190517
  Receipt Date: 20190517
  Transmission Date: 20190711
  Serious: Yes (Hospitalization, Other)
  Sender: FDA-Public Use
  Company Number: US-UNITED THERAPEUTICS-UNT-2019-008568

PATIENT
  Sex: Male
  Weight: 74.83 kg

DRUGS (4)
  1. TYVASO [Suspect]
     Active Substance: TREPROSTINIL
     Dosage: 24 ?G, QID
  2. AMLODIPINE [Concomitant]
     Active Substance: AMLODIPINE BESYLATE
     Indication: PRODUCT USED FOR UNKNOWN INDICATION
     Dosage: UNK
     Route: 065
  3. TYVASO [Suspect]
     Active Substance: TREPROSTINIL
     Indication: PULMONARY ARTERIAL HYPERTENSION
     Dosage: 18-54 ?G, QID
     Dates: start: 20160519
  4. TYVASO [Suspect]
     Active Substance: TREPROSTINIL
     Dosage: 30 ?G, UNK

REACTIONS (1)
  - Acute myocardial infarction [Unknown]
